FAERS Safety Report 11185259 (Version 1)
Quarter: 2015Q2

REPORT INFORMATION
  Report Type: Spontaneous
  Country: US (occurrence: None)
  Receive Date: 20150611
  Receipt Date: 20150611
  Transmission Date: 20150821
  Serious: Yes (Other)
  Sender: FDA-Public Use
  Company Number: None

PATIENT
  Age: 29 Year
  Sex: Female
  Weight: 65.77 kg

DRUGS (2)
  1. DEPO-PROVERA [Suspect]
     Active Substance: MEDROXYPROGESTERONE ACETATE
     Indication: ENDOMETRIOSIS
     Dosage: INJECTED INTO BUTTOCKS EVERY 3 MONTH
  2. LORATADINE. [Concomitant]
     Active Substance: LORATADINE

REACTIONS (5)
  - Paraesthesia [None]
  - Genital hypoaesthesia [None]
  - Vulvovaginal hypoaesthesia [None]
  - Hypoaesthesia [None]
  - Peripheral coldness [None]

NARRATIVE: CASE EVENT DATE: 20150602
